FAERS Safety Report 21340074 (Version 1)
Quarter: 2022Q3

REPORT INFORMATION
  Report Type: Report from Study
  Country: US (occurrence: US)
  Receive Date: 20220915
  Receipt Date: 20220915
  Transmission Date: 20221027
  Serious: Yes (Death, Other)
  Sender: FDA-Public Use
  Company Number: US-ACADIA PHARMACEUTICALS INC.-ACA-2022-PIM-003032

PATIENT
  Sex: Male

DRUGS (12)
  1. NUPLAZID [Suspect]
     Active Substance: PIMAVANSERIN TARTRATE
     Indication: Parkinson^s disease psychosis
     Dosage: 34 MILLIGRAM, QD
     Route: 048
     Dates: start: 20210714, end: 202209
  2. NUPLAZID [Suspect]
     Active Substance: PIMAVANSERIN TARTRATE
     Indication: Hallucination
  3. NUPLAZID [Suspect]
     Active Substance: PIMAVANSERIN TARTRATE
     Indication: Delusion
  4. ACETAMINOPHEN [Concomitant]
     Active Substance: ACETAMINOPHEN
     Dosage: 650 MILLIGRAM
  5. ASCORBIC ACID [Concomitant]
     Active Substance: ASCORBIC ACID
     Dosage: 500 MILLIGRAM
  6. CLOBETASOL [Concomitant]
     Active Substance: CLOBETASOL
     Dosage: 0.05%
  7. IBUPROFEN [Concomitant]
     Active Substance: IBUPROFEN
     Dosage: 200 MILLIGRAM
  8. LACTOBACILLUS [LACTOBACILLUS ACIDOPHILUS] [Concomitant]
  9. LOPERAMIDE [Concomitant]
     Active Substance: LOPERAMIDE
     Dosage: 2 MILLIGRAM
  10. MELOXICAM [Concomitant]
     Active Substance: MELOXICAM
     Dosage: 15 MILLIGRAM
  11. NIACINAMIDE [Concomitant]
     Active Substance: NIACINAMIDE
     Dosage: 100 MILLIGRAM
  12. SODIUM FLUORIDE 5000 PLUS [Concomitant]
     Active Substance: SODIUM FLUORIDE

REACTIONS (1)
  - COVID-19 pneumonia [Fatal]
